FAERS Safety Report 11752790 (Version 1)
Quarter: 2015Q4

REPORT INFORMATION
  Report Type: Spontaneous
  Country: US (occurrence: US)
  Receive Date: 20151119
  Receipt Date: 20151119
  Transmission Date: 20160304
  Serious: No
  Sender: FDA-Public Use
  Company Number: US-LUPIN PHARMACEUTICALS INC.-E2B_00004143

PATIENT
  Sex: Female
  Weight: 95.34 kg

DRUGS (1)
  1. CEFUROXIME AXETIL. [Suspect]
     Active Substance: CEFUROXIME AXETIL
     Indication: ACNE
     Route: 048
     Dates: start: 20150722, end: 20150822

REACTIONS (2)
  - Gingival hyperpigmentation [Not Recovered/Not Resolved]
  - Lip discolouration [Not Recovered/Not Resolved]
